FAERS Safety Report 24620024 (Version 1)
Quarter: 2024Q4

REPORT INFORMATION
  Report Type: Report from Study
  Country: BR (occurrence: BR)
  Receive Date: 20241114
  Receipt Date: 20241114
  Transmission Date: 20250114
  Serious: No
  Sender: JOHNSON AND JOHNSON
  Company Number: BR-JNJFOC-20241128300

PATIENT
  Age: 69 Year
  Sex: Male
  Weight: 120 kg

DRUGS (4)
  1. TALVEY [Suspect]
     Active Substance: TALQUETAMAB-TGVS
     Indication: Plasma cell myeloma
     Route: 058
     Dates: start: 20241111
  2. TALVEY [Suspect]
     Active Substance: TALQUETAMAB-TGVS
     Route: 058
  3. TALVEY [Suspect]
     Active Substance: TALQUETAMAB-TGVS
     Route: 058
  4. TALVEY [Suspect]
     Active Substance: TALQUETAMAB-TGVS
     Route: 058

REACTIONS (1)
  - Product prescribing error [Unknown]
